FAERS Safety Report 8317064-5 (Version None)
Quarter: 2012Q2

REPORT INFORMATION
  Report Type: 
  Country: None (occurrence: None)
  Receive Date: 20120425
  Receipt Date: 20120410
  Transmission Date: 20120825
  Serious: Yes (Life-Threatening, Hospitalization, Other)
  Sender: FDA-Public Use
  Company Number: 2012-171

PATIENT
  Sex: Male

DRUGS (2)
  1. HALDOL [Concomitant]
  2. PRIALT [Suspect]
     Dosage: 0.138 UG, ONCE/HOUR, INTRATHECAL
     Route: 037
     Dates: start: 20111201, end: 20120404

REACTIONS (4)
  - LETHARGY [None]
  - HYPOVENTILATION [None]
  - HYPERCAPNIA [None]
  - UNRESPONSIVE TO STIMULI [None]
